FAERS Safety Report 9449635 (Version 1)
Quarter: 2013Q3

REPORT INFORMATION
  Report Type: Spontaneous
  Country: US (occurrence: US)
  Receive Date: 20130809
  Receipt Date: 20130809
  Transmission Date: 20140515
  Serious: Yes (Other)
  Sender: FDA-Public Use
  Company Number: US-PFIZER INC-2013229648

PATIENT
  Age: 62 Year
  Sex: Female

DRUGS (2)
  1. RAPAMUNE [Suspect]
     Indication: PROPHYLAXIS AGAINST TRANSPLANT REJECTION
     Dosage: 2 MG (TWO TABLETS OF 1MG), 1X/DAY
     Route: 048
     Dates: start: 201207
  2. CELLCEPT [Concomitant]
     Dosage: UNK

REACTIONS (1)
  - Aphthous stomatitis [Unknown]
